FAERS Safety Report 6360827-6 (Version None)
Quarter: 2009Q3

REPORT INFORMATION
  Report Type: 
  Country: None (occurrence: None)
  Receive Date: 20090918
  Receipt Date: 20090907
  Transmission Date: 20100115
  Serious: Yes (Life-Threatening, Other)
  Sender: FDA-Public Use
  Company Number: GB-ROCHE-655694

PATIENT
  Age: 52 Year
  Sex: Female

DRUGS (5)
  1. TAMIFLU [Suspect]
     Indication: DRUG USE FOR UNKNOWN INDICATION
     Route: 065
     Dates: start: 20090802, end: 20090806
  2. METHOTREXATE [Interacting]
     Indication: DRUG USE FOR UNKNOWN INDICATION
     Route: 065
  3. CO-DYDRAMOL [Concomitant]
  4. ETODOLAC [Concomitant]
  5. HUMIRA [Concomitant]

REACTIONS (2)
  - DRUG INTERACTION [None]
  - PNEUMONITIS [None]
